FAERS Safety Report 13360127 (Version 1)
Quarter: 2017Q1

REPORT INFORMATION
  Report Type: Spontaneous
  Country: US (occurrence: US)
  Receive Date: 20170322
  Receipt Date: 20170322
  Transmission Date: 20170429
  Serious: No
  Sender: FDA-Public Use
  Company Number: US-TAKEDA-2017TUS005865

PATIENT
  Age: 77 Year
  Sex: Male
  Weight: 99.77 kg

DRUGS (1)
  1. ULORIC [Suspect]
     Active Substance: FEBUXOSTAT
     Indication: GOUT
     Dosage: 40 MG, UNK
     Route: 065
     Dates: start: 201612

REACTIONS (1)
  - Gout [Not Recovered/Not Resolved]
